FAERS Safety Report 9748484 (Version 1)
Quarter: 2013Q4

REPORT INFORMATION
  Report Type: Spontaneous
  Country: US (occurrence: None)
  Receive Date: 20131209
  Receipt Date: 20131209
  Transmission Date: 20140711
  Serious: Yes (Life-Threatening, Hospitalization, Other)
  Sender: FDA-Public Use
  Company Number: 001637001A

PATIENT
  Age: 70 Year
  Sex: Female

DRUGS (6)
  1. MEANINGFUL BEAUTY ANTIOXIDANT DAY CREME WITH SPF 20 [Suspect]
     Dosage: DERMAL
     Route: 048
     Dates: start: 20131123, end: 20131125
  2. SKIN BRIGHTENING DECOLLETE AND NECK TREATMENT SPF 15 [Suspect]
     Dosage: DERMAL
     Route: 048
     Dates: start: 20131123, end: 20131125
  3. CRESTOR [Concomitant]
  4. ANTIHYPERTENSIVE [Concomitant]
  5. DIABETIC MEDICATIONS [Concomitant]
  6. ASTHMA MEDICATIONS [Concomitant]

REACTIONS (5)
  - Acne [None]
  - Neck pain [None]
  - Nausea [None]
  - Headache [None]
  - Skin disorder [None]
